FAERS Safety Report 9062716 (Version 4)
Quarter: 2013Q3

REPORT INFORMATION
  Report Type: Spontaneous
  Country: US (occurrence: US)
  Receive Date: 20130213
  Receipt Date: 20130925
  Transmission Date: 20140515
  Serious: Yes (Disabling, Other)
  Sender: FDA-Public Use
  Company Number: US-BAYER-2013-017121

PATIENT
  Age: 62 Year
  Sex: Male

DRUGS (2)
  1. AVELOX [Suspect]
     Indication: LOWER RESPIRATORY TRACT INFECTION
     Dosage: 400 MG, QD
     Dates: start: 20110406, end: 20110411
  2. AVELOX [Suspect]
     Indication: INFECTIVE EXACERBATION OF CHRONIC OBSTRUCTIVE AIRWAYS DISEASE

REACTIONS (13)
  - Ophthalmoplegia [None]
  - Iris hypopigmentation [None]
  - Intraocular pressure increased [None]
  - Ocular discomfort [None]
  - Photophobia [None]
  - Injury [None]
  - Uveitis [None]
  - Visual impairment [None]
  - Pigmentary glaucoma [None]
  - Anxiety [None]
  - Pain [None]
  - Emotional distress [None]
  - Anhedonia [None]
